FAERS Safety Report 8353199-9 (Version None)
Quarter: 2012Q2

REPORT INFORMATION
  Report Type: 
  Country: None (occurrence: None)
  Receive Date: 20120511
  Receipt Date: 20120504
  Transmission Date: 20120825
  Serious: Yes (Other)
  Sender: FDA-Public Use
  Company Number: BR-ASTRAZENECA-2012SE29280

PATIENT
  Age: 68 Year
  Sex: Female
  Weight: 63 kg

DRUGS (2)
  1. UNKNOWN [Concomitant]
     Indication: DIURETIC THERAPY
     Route: 048
     Dates: end: 20120301
  2. ATACAND [Suspect]
     Route: 048
     Dates: end: 20120301

REACTIONS (1)
  - BLOOD PRESSURE SYSTOLIC INCREASED [None]
